FAERS Safety Report 4838585-3 (Version None)
Quarter: 2005Q4

REPORT INFORMATION
  Report Type: 
  Country: None (occurrence: None)
  Receive Date: 20051123
  Receipt Date: 20051123
  Transmission Date: 20060501
  Serious: Yes (Hospitalization)
  Sender: FDA-Public Use
  Company Number: None

PATIENT
  Age: 59 Year
  Sex: Male
  Weight: 76.4 kg

DRUGS (8)
  1. DOCETAXEL [Suspect]
  2. LOPERAMIDE HCL [Concomitant]
  3. DIPHENH [Concomitant]
  4. LIDOCAINE [Concomitant]
  5. MAALOX FAST BLOCKER [Concomitant]
  6. NYSTATIN [Concomitant]
  7. DM 10/GUAIFENESN [Concomitant]
  8. SELENIUM SULFIDE [Concomitant]

REACTIONS (1)
  - NEUTROPHIL COUNT DECREASED [None]
